FAERS Safety Report 9504694 (Version 2)
Quarter: 2013Q3

REPORT INFORMATION
  Report Type: Spontaneous
  Country: AU (occurrence: AU)
  Receive Date: 20130906
  Receipt Date: 20130930
  Transmission Date: 20140515
  Serious: Yes (Hospitalization)
  Sender: FDA-Public Use
  Company Number: US-TAKEDA-2013TUS000201

PATIENT
  Sex: 0

DRUGS (3)
  1. COLCHICINE [Suspect]
     Dosage: 50 TABLETS OF 0.5 MG COLCHICINE
  2. INDOMETHACIN /00003801/ [Suspect]
     Dosage: 36 TABLETS OF 25 MG
  3. G-CSF [Concomitant]
     Indication: NEUTROPENIC SEPSIS
     Dosage: DAILY
     Route: 042

REACTIONS (5)
  - Multi-organ failure [Recovered/Resolved]
  - Bone marrow disorder [Recovered/Resolved]
  - Overdose [Unknown]
  - Pancytopenia [Recovered/Resolved]
  - Alopecia [Recovered/Resolved]
